FAERS Safety Report 8770518 (Version 3)
Quarter: 2012Q4

REPORT INFORMATION
  Report Type: 
  Country: JP (occurrence: JP)
  Receive Date: 20120906
  Receipt Date: 20120925
  Transmission Date: 20130627
  Serious: Yes (Other)
  Sender: FDA-Public Use
  Company Number: JP-PFIZER INC-2012216994

PATIENT
  Age: 60 Year
  Sex: Female

DRUGS (3)
  1. LYRICA [Suspect]
     Indication: NEURALGIA
     Dosage: 50 mg, 1x/day
     Route: 048
     Dates: start: 201208
  2. PREDONINE [Concomitant]
     Dosage: UNK
  3. REBAMIPIDE [Concomitant]
     Dosage: UNK

REACTIONS (1)
  - Cystitis [Unknown]
